FAERS Safety Report 5353292-9 (Version None)
Quarter: 2007Q2

REPORT INFORMATION
  Report Type: 
  Country: None (occurrence: None)
  Receive Date: 20070518
  Receipt Date: 20070214
  Transmission Date: 20071010
  Serious: No
  Sender: FDA-Public Use
  Company Number: TPA2007A00382

PATIENT
  Age: 85 Year
  Sex: Female
  Weight: 50.8029 kg

DRUGS (2)
  1. ROZEREM [Suspect]
     Dosage: 8 MG, HS, PER ORAL
     Route: 048
  2. COUMADIN [Concomitant]

REACTIONS (1)
  - ANTICOAGULATION DRUG LEVEL ABOVE THERAPEUTIC [None]
